FAERS Safety Report 5301549-X (Version None)
Quarter: 2007Q2

REPORT INFORMATION
  Report Type: 
  Country: None (occurrence: None)
  Receive Date: 20070418
  Receipt Date: 20070409
  Transmission Date: 20071010
  Serious: Yes (Other)
  Sender: FDA-Public Use
  Company Number: US-GENENTECH-237696

PATIENT
  Sex: Male

DRUGS (6)
  1. LUCENTIS [Suspect]
     Indication: MACULAR DEGENERATION
     Dosage: UNK, UNK
     Route: 031
     Dates: start: 20061101, end: 20061201
  2. AVASTIN [Suspect]
     Indication: DRUG USE FOR UNKNOWN INDICATION
     Dates: start: 20060818
  3. RANITIDINE [Concomitant]
     Indication: GASTROOESOPHAGEAL REFLUX DISEASE
  4. ZOCOR [Concomitant]
     Indication: BLOOD CHOLESTEROL
  5. NORVASC [Concomitant]
     Indication: HYPERTENSION
  6. AVAPRO [Concomitant]
     Indication: HYPERTENSION

REACTIONS (1)
  - CATARACT [None]
